FAERS Safety Report 13645186 (Version 1)
Quarter: 2017Q2

REPORT INFORMATION
  Report Type: Spontaneous
  Country: US (occurrence: US)
  Receive Date: 20170612
  Receipt Date: 20170612
  Transmission Date: 20170830
  Serious: No
  Sender: FDA-Public Use
  Company Number: US-ROCHE-1418030

PATIENT
  Sex: Female

DRUGS (13)
  1. XELODA [Suspect]
     Active Substance: CAPECITABINE
     Dosage: 14 DAYS ON AND 7 DAYS OFF
     Route: 048
     Dates: start: 20140513
  2. RESTORIL (UNITED STATES) [Concomitant]
     Dosage: TAKE AT BEDTIME
     Route: 048
  3. ZOLOFT [Concomitant]
     Active Substance: SERTRALINE HYDROCHLORIDE
     Dosage: AT BEDTIME
     Route: 048
  4. XELODA [Suspect]
     Active Substance: CAPECITABINE
     Indication: OESTROGEN RECEPTOR POSITIVE BREAST CANCER
     Dosage: 14 DAYS ON/ 7 DAYS OFF
     Route: 048
     Dates: start: 20140520
  5. BACTRIM [Concomitant]
     Active Substance: SULFAMETHOXAZOLE\TRIMETHOPRIM
     Indication: PLEURAL INFECTION
     Dosage: TAKE MWF
     Route: 048
  6. METOPROLOLTARTRAT [Concomitant]
     Dosage: 0.5 IN 1 HOURS
     Route: 048
  7. PANTOPRAZOLE [Concomitant]
     Active Substance: PANTOPRAZOLE
  8. PREDNISONE. [Concomitant]
     Active Substance: PREDNISONE
     Dosage: TAKE 14 DAYS ON/7 DAYS OFF/WITH CAPECITABINE CYCLE
     Route: 048
     Dates: start: 2014
  9. XELODA [Suspect]
     Active Substance: CAPECITABINE
     Dosage: 14 DAYS ON/ 7 DAYS OFF
     Route: 048
     Dates: start: 20140512, end: 20140519
  10. PROTONIX [Concomitant]
     Active Substance: PANTOPRAZOLE SODIUM
     Indication: GASTROOESOPHAGEAL REFLUX DISEASE
     Route: 048
  11. METOPROLOLTARTRAT [Concomitant]
     Route: 065
  12. ACYCLOVIR. [Concomitant]
     Active Substance: ACYCLOVIR
     Indication: STOMATITIS
     Dosage: 14 DAYS ON/ 7 OFF/ WITH XELODA CYCLE
     Route: 048
  13. XELODA [Suspect]
     Active Substance: CAPECITABINE
     Route: 048
     Dates: start: 20140514

REACTIONS (9)
  - Skin fissures [Not Recovered/Not Resolved]
  - Erythema [Unknown]
  - Impaired healing [Unknown]
  - Stomatitis [Not Recovered/Not Resolved]
  - Fatigue [Not Recovered/Not Resolved]
  - Muscle spasms [Not Recovered/Not Resolved]
  - Skin fissures [Unknown]
  - Abdominal discomfort [Unknown]
  - Nail hypertrophy [Unknown]
